FAERS Safety Report 5611481-X (Version None)
Quarter: 2008Q1

REPORT INFORMATION
  Report Type: 
  Country: None (occurrence: None)
  Receive Date: 20080201
  Receipt Date: 20071001
  Transmission Date: 20080703
  Serious: No
  Sender: FDA-Public Use
  Company Number: A0685362A

PATIENT
  Sex: Female

DRUGS (1)
  1. LOTRONEX [Suspect]
     Route: 065

REACTIONS (3)
  - DISCOMFORT [None]
  - DRUG INEFFECTIVE [None]
  - FLATULENCE [None]
